FAERS Safety Report 20703296 (Version 1)
Quarter: 2022Q2

REPORT INFORMATION
  Report Type: Spontaneous
  Country: GB (occurrence: GB)
  Receive Date: 20220413
  Receipt Date: 20220413
  Transmission Date: 20220721
  Serious: Yes (Other)
  Sender: FDA-Public Use
  Company Number: GB-JNJFOC-20210305386

PATIENT
  Age: 8 Decade
  Sex: Male

DRUGS (5)
  1. ABIRATERONE [Suspect]
     Active Substance: ABIRATERONE
     Indication: Prostate cancer
     Dosage: 500 MILLIGRAM, DAILY, TABLET
     Route: 048
     Dates: start: 20190201, end: 20210212
  2. ABIRATERONE [Suspect]
     Active Substance: ABIRATERONE
     Dosage: 500 MILLIGRAM, DAILY, TABLET
     Route: 048
     Dates: start: 20210507
  3. DEXAMETHASONE [Concomitant]
     Active Substance: DEXAMETHASONE
     Indication: Prostate cancer
     Dosage: 0.5 MILLIGRAM, DAILY, TABLET
     Route: 048
     Dates: start: 20211223
  4. PREDNISOLONE [Concomitant]
     Active Substance: PREDNISOLONE
     Indication: Prostate cancer
     Dosage: 5 MILLIGRAM, UNK
     Route: 048
     Dates: start: 20190201, end: 20210212
  5. PREDNISOLONE [Concomitant]
     Active Substance: PREDNISOLONE
     Dosage: 10 MILLIGRAM, DAILY
     Route: 048
     Dates: start: 20190201, end: 20211223

REACTIONS (9)
  - Hypertension [Not Recovered/Not Resolved]
  - Pruritus [Recovering/Resolving]
  - Prostate cancer metastatic [Not Recovered/Not Resolved]
  - Hip arthroplasty [Unknown]
  - Prostatic specific antigen increased [Recovering/Resolving]
  - Joint stiffness [Recovering/Resolving]
  - Dyspnoea [Recovering/Resolving]
  - Fatigue [Recovering/Resolving]
  - Haemoglobin decreased [Recovering/Resolving]

NARRATIVE: CASE EVENT DATE: 20210323
